FAERS Safety Report 17042723 (Version 1)
Quarter: 2019Q4

REPORT INFORMATION
  Report Type: Report from Study
  Country: CN (occurrence: CN)
  Receive Date: 20191118
  Receipt Date: 20191118
  Transmission Date: 20200122
  Serious: Yes (Death)
  Sender: FDA-Public Use
  Company Number: NVSC2019CN038037

PATIENT
  Sex: Female

DRUGS (1)
  1. EXJADE [Suspect]
     Active Substance: DEFERASIROX
     Indication: APLASTIC ANAEMIA
     Dosage: 250 MG, QD
     Route: 048
     Dates: start: 20180213

REACTIONS (1)
  - Death [Fatal]
